FAERS Safety Report 16320048 (Version 2)
Quarter: 2020Q2

REPORT INFORMATION
  Report Type: Spontaneous
  Country: US (occurrence: US)
  Receive Date: 20190516
  Receipt Date: 20200410
  Transmission Date: 20200713
  Serious: Yes (Hospitalization, Other)
  Sender: FDA-Public Use
  Company Number: US-GLAXOSMITHKLINE-US2019GSK085483

PATIENT
  Sex: Female

DRUGS (7)
  1. PREVACID [Suspect]
     Active Substance: LANSOPRAZOLE
     Indication: GASTROOESOPHAGEAL REFLUX DISEASE
     Dosage: 20 MG, QD
     Route: 065
     Dates: start: 20090518, end: 20171231
  2. OMEPRAZOLE. [Suspect]
     Active Substance: OMEPRAZOLE
     Indication: GASTROOESOPHAGEAL REFLUX DISEASE
     Dosage: 40 MG, QD
     Route: 065
     Dates: start: 20120919, end: 20170925
  3. OMEPRAZOLE. [Suspect]
     Active Substance: OMEPRAZOLE
     Indication: PRODUCT USED FOR UNKNOWN INDICATION
     Dosage: 20 MG, QD
     Route: 048
  4. PANTOPRAZOLE [Suspect]
     Active Substance: PANTOPRAZOLE
     Indication: GASTROOESOPHAGEAL REFLUX DISEASE
     Dosage: 40 MG, QD
     Route: 048
     Dates: start: 20110714, end: 20111003
  5. OMEPRAZOLE. [Suspect]
     Active Substance: OMEPRAZOLE
     Dosage: 20 MG, QD
     Route: 048
     Dates: start: 20120919, end: 20170925
  6. OMEPRAZOLE. [Suspect]
     Active Substance: OMEPRAZOLE
     Dosage: 20 MG, BID
     Route: 048
     Dates: start: 20130104, end: 20130812
  7. PREVACID [Suspect]
     Active Substance: LANSOPRAZOLE
     Indication: GASTROOESOPHAGEAL REFLUX DISEASE
     Dosage: 30 MG, QD
     Route: 065
     Dates: start: 20030520, end: 20030714

REACTIONS (22)
  - Dysuria [Unknown]
  - Renal tubular dysfunction [Unknown]
  - Peritoneal dialysis [Unknown]
  - Chronic kidney disease [Unknown]
  - Nephritis [Unknown]
  - Renal disorder [Unknown]
  - Hypertensive nephropathy [Unknown]
  - Pollakiuria [Unknown]
  - End stage renal disease [Not Recovered/Not Resolved]
  - Proteinuria [Unknown]
  - Renal impairment [Unknown]
  - Urinary tract disorder [Unknown]
  - Haemodialysis [Unknown]
  - Focal segmental glomerulosclerosis [Unknown]
  - Ureteral disorder [Unknown]
  - Renal cyst [Unknown]
  - Acute kidney injury [Unknown]
  - Glomerulonephritis membranous [Unknown]
  - Nephropathy [Unknown]
  - Nephrotic syndrome [Unknown]
  - Renal failure [Unknown]
  - Dialysis [Not Recovered/Not Resolved]
